FAERS Safety Report 9900428 (Version 2)
Quarter: 2014Q1

REPORT INFORMATION
  Report Type: Spontaneous
  Country: US (occurrence: US)
  Receive Date: 20140217
  Receipt Date: 20140217
  Transmission Date: 20141002
  Serious: Yes (Disabling)
  Sender: FDA-Public Use
  Company Number: US-GE HEALTHCARE MEDICAL DIAGNOSTICS-OSCN-PR-0708S-0344

PATIENT
  Age: 45 Year
  Sex: Male

DRUGS (4)
  1. OMNISCAN [Suspect]
     Indication: RENAL CANCER
     Dates: start: 20060225, end: 20060225
  2. MAGNEVIST [Suspect]
     Indication: PRODUCT USED FOR UNKNOWN INDICATION
     Dates: start: 19891128, end: 19891128
  3. MAGNEVIST [Suspect]
     Dates: start: 19900501, end: 19900501
  4. PREDNISONE [Concomitant]
     Indication: NEPHROGENIC SYSTEMIC FIBROSIS
     Dates: start: 20060524

REACTIONS (1)
  - Nephrogenic systemic fibrosis [Not Recovered/Not Resolved]
